FAERS Safety Report 12883428 (Version 2)
Quarter: 2016Q4

REPORT INFORMATION
  Report Type: Spontaneous
  Country: GB (occurrence: GB)
  Receive Date: 20161025
  Receipt Date: 20161111
  Transmission Date: 20170207
  Serious: Yes (Other)
  Sender: FDA-Public Use
  Company Number: GB-BAUSCH-BL-2016-025434

PATIENT
  Age: 39 Year
  Sex: Female

DRUGS (2)
  1. METRONIDAZOLE. [Suspect]
     Active Substance: METRONIDAZOLE
     Indication: POSTOPERATIVE CARE
     Route: 065
  2. OFLOXACIN. [Suspect]
     Active Substance: OFLOXACIN
     Indication: POSTOPERATIVE CARE
     Route: 065

REACTIONS (23)
  - Pallor [Recovering/Resolving]
  - Panic attack [Recovering/Resolving]
  - Secretion discharge [Recovering/Resolving]
  - Cough [Recovering/Resolving]
  - Agitation [Not Recovered/Not Resolved]
  - Muscular weakness [Recovering/Resolving]
  - Parosmia [Recovering/Resolving]
  - Paralysis [Recovering/Resolving]
  - Insomnia [Recovering/Resolving]
  - Dyskinesia [Recovering/Resolving]
  - Contusion [Recovering/Resolving]
  - Dysgeusia [Recovering/Resolving]
  - Headache [Recovering/Resolving]
  - Dissociative disorder [Recovering/Resolving]
  - Hyperhidrosis [Recovering/Resolving]
  - Abnormal loss of weight [Not Recovered/Not Resolved]
  - Mania [Not Recovered/Not Resolved]
  - Tinnitus [Recovering/Resolving]
  - Sensory disturbance [Recovering/Resolving]
  - Fatigue [Not Recovered/Not Resolved]
  - Logorrhoea [Not Recovered/Not Resolved]
  - Hallucinations, mixed [Recovering/Resolving]
  - Nightmare [Recovering/Resolving]
